FAERS Safety Report 12359047 (Version 2)
Quarter: 2016Q2

REPORT INFORMATION
  Report Type: Spontaneous
  Country: US (occurrence: US)
  Receive Date: 20160512
  Receipt Date: 20160620
  Transmission Date: 20160815
  Serious: Yes (Other)
  Sender: FDA-Public Use
  Company Number: US-BAYER-2016-087482

PATIENT
  Age: 60 Year
  Sex: Male

DRUGS (1)
  1. KOGENATE FS [Suspect]
     Active Substance: ANTIHEMOPHILIC FACTOR, HUMAN RECOMBINANT
     Indication: FACTOR VIII DEFICIENCY
     Dosage: 1500 U, EVERY 12 TO 24 HOURS
     Route: 042
     Dates: start: 201211

REACTIONS (2)
  - Haemarthrosis [None]
  - Cataract [None]

NARRATIVE: CASE EVENT DATE: 20160503
